FAERS Safety Report 5158234-7 (Version None)
Quarter: 2006Q4

REPORT INFORMATION
  Report Type: 
  Country: None (occurrence: None)
  Receive Date: 20061121
  Receipt Date: 20061121
  Transmission Date: 20070319
  Serious: Yes (Hospitalization)
  Sender: FDA-Public Use
  Company Number: None

PATIENT
  Age: 69 Year
  Sex: Female
  Weight: 58.9676 kg

DRUGS (2)
  1. DOCETAXEL [Suspect]
     Indication: PANCREATIC CARCINOMA
     Dosage: 40 MG EVERY 21-DAYS IV
     Route: 042
     Dates: start: 20061107
  2. CAPECITABINE [Suspect]
     Indication: PANCREATIC CARCINOMA
     Dosage: 2000MG 14 DAYS PO
     Route: 048
     Dates: start: 20061107

REACTIONS (2)
  - ABDOMINAL PAIN UPPER [None]
  - VOMITING [None]
